FAERS Safety Report 5008051-3 (Version None)
Quarter: 2006Q2

REPORT INFORMATION
  Report Type: 
  Country: None (occurrence: None)
  Receive Date: 20060404
  Receipt Date: 20050603
  Transmission Date: 20061013
  Serious: Yes (Other)
  Sender: FDA-Public Use
  Company Number: 2005085749

PATIENT
  Age: 42 Year
  Sex: Female

DRUGS (9)
  1. GEODON [Suspect]
     Indication: BIPOLAR DISORDER
     Dosage: 200 MG (2 IN 1 D), ORAL
     Route: 048
     Dates: start: 20050401
  2. CAFFEINE (CAFFEINE) [Suspect]
     Dosage: ORAL
     Route: 048
  3. ALL OTHER NON-THERAPEUTIC PRODUCTS (ALL OTHER NON-THERAPEUTIC PRODUCTS [Suspect]
     Dosage: ORAL
     Route: 048
     Dates: start: 20050101
  4. PROZAC [Concomitant]
  5. SEROQUEL [Concomitant]
  6. LAMICTAL [Concomitant]
  7. AMBIEN [Concomitant]
  8. NICORETTE [Concomitant]
  9. LASIX [Concomitant]

REACTIONS (6)
  - ANXIETY [None]
  - CHEST PAIN [None]
  - DEPRESSION [None]
  - DYSPEPSIA [None]
  - HEART RATE INCREASED [None]
  - WEIGHT INCREASED [None]
